FAERS Safety Report 4300230-3 (Version None)
Quarter: 2004Q1

REPORT INFORMATION
  Report Type: 
  Country: None (occurrence: None)
  Receive Date: 20040218
  Receipt Date: 20040122
  Transmission Date: 20041129
  Serious: Yes (Other)
  Sender: FDA-Public Use
  Company Number: 20040100073

PATIENT
  Age: 66 Year
  Sex: Female
  Weight: 60 kg

DRUGS (1)
  1. REGLAN (METOCLOPRAMIDE) BAXTER [Suspect]
     Indication: SMALL INTESTINAL OBSTRUCTION
     Dosage: 10 MG DAILY
     Dates: start: 20040118, end: 20040122

REACTIONS (1)
  - MEDICATION ERROR [None]
